FAERS Safety Report 23864779 (Version 2)
Quarter: 2024Q2

REPORT INFORMATION
  Report Type: Spontaneous
  Country: US (occurrence: US)
  Receive Date: 20240516
  Receipt Date: 20240530
  Transmission Date: 20240715
  Serious: Yes (Death, Other)
  Sender: FDA-Public Use
  Company Number: US-REGENERON PHARMACEUTICALS, INC.-2024-069261

PATIENT

DRUGS (1)
  1. EYLEA [Suspect]
     Active Substance: AFLIBERCEPT
     Indication: Product used for unknown indication
     Dosage: UNK; FORMULATION: GERRESHEIMER PFS

REACTIONS (1)
  - Death [Fatal]

NARRATIVE: CASE EVENT DATE: 20240101
